FAERS Safety Report 6271027-2 (Version None)
Quarter: 2009Q3

REPORT INFORMATION
  Report Type: 
  Country: None (occurrence: None)
  Receive Date: 20090716
  Receipt Date: 20090706
  Transmission Date: 20100115
  Serious: Yes (Hospitalization)
  Sender: FDA-Public Use
  Company Number: FR-ELI_LILLY_AND_COMPANY-FR200905003657

PATIENT
  Sex: Male
  Weight: 83 kg

DRUGS (9)
  1. CYMBALTA [Suspect]
     Indication: DEPRESSION
     Dosage: 60 MG, DAILY (1/D)
     Route: 048
     Dates: start: 20090201, end: 20090406
  2. ANDROCUR [Concomitant]
     Dosage: 100 MG, DAILY (1/D)
     Route: 048
     Dates: start: 20080101
  3. NORVIR [Concomitant]
     Indication: HIV INFECTION
     Dosage: 200 MG, DAILY (1/D)
     Route: 048
  4. PREZISTA [Concomitant]
     Indication: HIV INFECTION
     Dosage: 1.2 G, UNK
     Route: 048
  5. TRUVADA                            /01398801/ [Concomitant]
     Indication: HIV INFECTION
     Dosage: 1 D/F, DAILY (1/D)
     Route: 048
  6. COLTRAMYL [Concomitant]
     Indication: BACK PAIN
     Dosage: 4 D/F, DAILY (1/D)
     Route: 048
  7. ZALDIAR [Concomitant]
     Indication: BACK PAIN
     Dosage: 6 D/F, DAILY (1/D)
     Route: 048
  8. PROVAMES [Concomitant]
     Dosage: 4 MG, DAILY (1/D)
     Route: 048
  9. VASTAREL [Concomitant]
     Dosage: 20 MG, DAILY (1/D)
     Route: 048

REACTIONS (1)
  - HEPATOCELLULAR INJURY [None]
